FAERS Safety Report 4552388-9 (Version None)
Quarter: 2005Q1

REPORT INFORMATION
  Report Type: 
  Country: None (occurrence: None)
  Receive Date: 20050114
  Receipt Date: 20040412
  Transmission Date: 20050727
  Serious: No
  Sender: FDA-Public Use
  Company Number: US-GLAXOSMITHKLINE-A0506789A

PATIENT
  Age: 45 Year
  Sex: Male
  Weight: 78.2 kg

DRUGS (1)
  1. IMITREX [Suspect]
     Indication: MIGRAINE
     Dosage: 6MG AS REQUIRED
     Route: 048
     Dates: start: 19990101, end: 20040422

REACTIONS (1)
  - BURNING SENSATION [None]
